FAERS Safety Report 13881659 (Version 1)
Quarter: 2017Q3

REPORT INFORMATION
  Report Type: Spontaneous
  Country: TH (occurrence: TH)
  Receive Date: 20170818
  Receipt Date: 20170818
  Transmission Date: 20171127
  Serious: Yes (Other)
  Sender: FDA-Public Use
  Company Number: PHHY2017TH117370

PATIENT
  Age: 43 Year
  Sex: Female

DRUGS (5)
  1. ZYKADIA [Suspect]
     Active Substance: CERITINIB
     Dosage: 5 DF, QD
     Route: 065
     Dates: start: 20160125, end: 20160208
  2. ZYKADIA [Suspect]
     Active Substance: CERITINIB
     Dosage: 4 DF, QD
     Route: 065
     Dates: start: 20160314, end: 20160321
  3. ZYKADIA [Suspect]
     Active Substance: CERITINIB
     Dosage: 3 DF, QD
     Route: 065
     Dates: start: 20160328, end: 20160919
  4. ZYKADIA [Suspect]
     Active Substance: CERITINIB
     Indication: LUNG ADENOCARCINOMA STAGE IV
     Dosage: 5 DF, QD
     Route: 065
     Dates: start: 20151228, end: 20160118
  5. ZYKADIA [Suspect]
     Active Substance: CERITINIB
     Dosage: 4 DF, QD
     Route: 065
     Dates: start: 20160215, end: 20160307

REACTIONS (6)
  - Fatigue [Unknown]
  - Pulmonary mass [Unknown]
  - Atelectasis [Unknown]
  - Vomiting [Unknown]
  - Diarrhoea [Unknown]
  - Nausea [Unknown]

NARRATIVE: CASE EVENT DATE: 20160918
